FAERS Safety Report 8845681 (Version 1)
Quarter: 2012Q4

REPORT INFORMATION
  Report Type: 
  Country: US (occurrence: US)
  Receive Date: 20121017
  Receipt Date: 20121017
  Transmission Date: 20130627
  Serious: No
  Sender: FDA-Public Use
  Company Number: US-ASTRAZENECA-2012SE75832

PATIENT
  Age: 38 Year
  Sex: Male
  Weight: 70.3 kg

DRUGS (1)
  1. SEROQUEL XR [Suspect]
     Indication: INSOMNIA
     Route: 048

REACTIONS (7)
  - Adverse event [Unknown]
  - Anxiety [Unknown]
  - Depression [Unknown]
  - Somnolence [Unknown]
  - Hypersomnia [Unknown]
  - Intentional drug misuse [Unknown]
  - Off label use [Unknown]
